FAERS Safety Report 5918070-8 (Version None)
Quarter: 2008Q4

REPORT INFORMATION
  Report Type: 
  Country: None (occurrence: None)
  Receive Date: 20081014
  Receipt Date: 20081010
  Transmission Date: 20090506
  Serious: Yes (Hospitalization)
  Sender: FDA-Public Use
  Company Number: GR-ABBOTT-08P-066-0481246-00

PATIENT
  Sex: Female
  Weight: 51.4 kg

DRUGS (7)
  1. ZEMPLAR [Suspect]
     Indication: HYPERPARATHYROIDISM SECONDARY
     Route: 042
     Dates: start: 20070525
  2. IRON DEXTRAN [Concomitant]
     Indication: ANAEMIA
     Route: 042
  3. NEUROGRISEVIT [Concomitant]
     Indication: DRUG USE FOR UNKNOWN INDICATION
     Route: 042
  4. LEVOCARNITINE [Concomitant]
     Indication: DRUG USE FOR UNKNOWN INDICATION
     Route: 042
  5. IVOR 3500 [Concomitant]
     Indication: DRUG USE FOR UNKNOWN INDICATION
     Route: 042
  6. NITRONG S 5 MG [Concomitant]
     Indication: DRUG USE FOR UNKNOWN INDICATION
  7. MIRCERA 100 [Concomitant]
     Indication: DRUG USE FOR UNKNOWN INDICATION
     Route: 042

REACTIONS (2)
  - BRONCHITIS [None]
  - PYREXIA [None]
